FAERS Safety Report 20325799 (Version 1)
Quarter: 2022Q1

REPORT INFORMATION
  Report Type: Other
  Country: UY (occurrence: None)
  Receive Date: 20220112
  Receipt Date: 20220112
  Transmission Date: 20220423
  Serious: Yes (Hospitalization, Other)
  Sender: FDA-Public Use
  Company Number: UY-Saptalis Pharmaceuticals,LLC-000162

PATIENT
  Age: 66 Year
  Sex: Male

DRUGS (3)
  1. POTASSIUM CHLORIDE [Suspect]
     Active Substance: POTASSIUM CHLORIDE
     Indication: Product used for unknown indication
     Dosage: A TOTAL OF 0.2 G OF KCL HAD BEEN INFUSED.
     Route: 008
  2. BUPIVACAINE [Suspect]
     Active Substance: BUPIVACAINE
     Indication: Epidural analgesia
     Dosage: 0.125% AT 6 ML/H
     Route: 008
  3. FENTANYL [Suspect]
     Active Substance: FENTANYL
     Indication: Epidural analgesia
     Dosage: 5 MICRO G/ML AT 6 ML/H
     Route: 008

REACTIONS (5)
  - Bradycardia [Recovered/Resolved]
  - Incorrect route of product administration [Unknown]
  - Paralysis [Recovered/Resolved]
  - Monoparesis [Recovered/Resolved]
  - Hypotension [Recovered/Resolved]
